FAERS Safety Report 9027452 (Version 3)
Quarter: 2013Q1

REPORT INFORMATION
  Report Type: Spontaneous
  Country: US (occurrence: US)
  Receive Date: 20130124
  Receipt Date: 20130228
  Transmission Date: 20140127
  Serious: Yes (Other)
  Sender: FDA-Public Use
  Company Number: US-BRISTOL-MYERS SQUIBB COMPANY-17286659

PATIENT
  Age: 62 Year
  Sex: Female

DRUGS (2)
  1. ORENCIA [Suspect]
     Indication: RHEUMATOID ARTHRITIS
     Dosage: LAST INF:20JUN12
     Route: 042
     Dates: start: 20111130
  2. METHOTREXATE [Suspect]

REACTIONS (4)
  - Systemic lupus erythematosus [Unknown]
  - Fibromyalgia [Unknown]
  - Osteoarthritis [Unknown]
  - Gout [Not Recovered/Not Resolved]
